FAERS Safety Report 12487748 (Version 1)
Quarter: 2016Q2

REPORT INFORMATION
  Report Type: Spontaneous
  Country: CA (occurrence: US)
  Receive Date: 20160622
  Receipt Date: 20160622
  Transmission Date: 20160815
  Serious: No
  Sender: FDA-Public Use
  Company Number: CA-ASTRAZENECA-2016SE65635

PATIENT
  Sex: Female

DRUGS (2)
  1. CANDESARTAN [Suspect]
     Active Substance: CANDESARTAN
     Indication: HYPERTENSION
     Dosage: 8.0MG UNKNOWN
     Route: 048
  2. CANDESARTAN [Suspect]
     Active Substance: CANDESARTAN
     Indication: HYPERTENSION
     Dosage: 12.0MG UNKNOWN
     Route: 048

REACTIONS (1)
  - Blood pressure increased [Unknown]
